FAERS Safety Report 6707052-4 (Version None)
Quarter: 2010Q2

REPORT INFORMATION
  Report Type: 
  Country: None (occurrence: None)
  Receive Date: 20100429
  Receipt Date: 20100414
  Transmission Date: 20101027
  Serious: Yes (Hospitalization)
  Sender: FDA-Public Use
  Company Number: 008892

PATIENT
  Sex: Female
  Weight: 63.5036 kg

DRUGS (5)
  1. CIMZIA [Suspect]
     Indication: RHEUMATOID ARTHRITIS
     Dosage: (400 MG SUBCUTANEOUS)
     Route: 058
     Dates: start: 20100115, end: 20100303
  2. PREDNISONE [Concomitant]
  3. PLAQUENIL [Concomitant]
  4. MTX /00113801/ [Concomitant]
  5. MOBIC [Concomitant]

REACTIONS (10)
  - ERYTHEMA [None]
  - ESCHERICHIA INFECTION [None]
  - GLUCOSE URINE PRESENT [None]
  - HEPATIC CYST [None]
  - INTERVERTEBRAL DISC DEGENERATION [None]
  - NEPHROLITHIASIS [None]
  - PAIN IN EXTREMITY [None]
  - PLEURAL EFFUSION [None]
  - PYELONEPHRITIS [None]
  - URINARY TRACT INFECTION BACTERIAL [None]
